FAERS Safety Report 24218345 (Version 1)
Quarter: 2024Q3

REPORT INFORMATION
  Report Type: Spontaneous
  Country: US (occurrence: US)
  Receive Date: 20240816
  Receipt Date: 20240816
  Transmission Date: 20241016
  Serious: No
  Sender: SUNOVION
  Company Number: US-SUMITOMO PHARMA SWITZERLAND GMBH-2024MYSCI0700795

PATIENT

DRUGS (8)
  1. ORGOVYX [Suspect]
     Active Substance: RELUGOLIX
     Indication: Prostate cancer
     Dosage: 360 MG, SINGLE
     Route: 048
  2. ORGOVYX [Suspect]
     Active Substance: RELUGOLIX
     Dosage: 120 MG, QD
     Route: 048
  3. ALEVE [Concomitant]
     Active Substance: NAPROXEN SODIUM
  4. ALLOPURINOL [Concomitant]
     Active Substance: ALLOPURINOL
  5. MINERALS\VITAMINS [Concomitant]
     Active Substance: MINERALS\VITAMINS
  6. DICLOFENAC [Concomitant]
     Active Substance: DICLOFENAC
  7. LISINOPRIL [Concomitant]
     Active Substance: LISINOPRIL
  8. MINERALS\VITAMINS [Concomitant]
     Active Substance: MINERALS\VITAMINS

REACTIONS (4)
  - Palpitations [Unknown]
  - Muscle atrophy [Unknown]
  - Hot flush [Unknown]
  - Weight increased [Unknown]
